FAERS Safety Report 24360731 (Version 1)
Quarter: 2024Q3

REPORT INFORMATION
  Report Type: Spontaneous
  Country: ES (occurrence: ES)
  Receive Date: 20240925
  Receipt Date: 20240925
  Transmission Date: 20241016
  Serious: Yes (Life-Threatening, Hospitalization, Other)
  Sender: CELLTRION
  Company Number: None

PATIENT

DRUGS (4)
  1. RITUXIMAB [Suspect]
     Active Substance: RITUXIMAB
     Indication: Central nervous system lymphoma
     Dosage: RITUXIMAB 500 MG/M2 (919 MG) IV, 1/CYCLE
     Route: 042
     Dates: start: 20231201, end: 20240228
  2. VINCRISTINE [Suspect]
     Active Substance: VINCRISTINE
     Indication: Central nervous system lymphoma
     Dosage: VINCRISTINA 2 MG IV, 1/CYCLE
     Route: 042
     Dates: start: 20231201, end: 20240229
  3. METHOTREXATE [Suspect]
     Active Substance: METHOTREXATE
     Indication: Central nervous system lymphoma
     Dosage: METOTREXATO 2000 MG/M2 (3676 MG) IV, 1/CYCLE
     Route: 042
     Dates: start: 20231201, end: 20240228
  4. PROCARBAZINE HYDROCHLORIDE [Suspect]
     Active Substance: PROCARBAZINE HYDROCHLORIDE
     Indication: Central nervous system lymphoma
     Dosage: PROCARBACINA (NATULAN) 200 MG, 1/CYCLE
     Route: 048
     Dates: start: 20231201, end: 20240305

REACTIONS (2)
  - Agranulocytosis [Recovered/Resolved]
  - Overdose [Unknown]

NARRATIVE: CASE EVENT DATE: 20240311
